FAERS Safety Report 12129993 (Version 1)
Quarter: 2016Q1

REPORT INFORMATION
  Report Type: Spontaneous
  Country: US (occurrence: None)
  Receive Date: 20160229
  Receipt Date: 20160229
  Transmission Date: 20160526
  Serious: No
  Sender: FDA-Public Use
  Company Number: None

PATIENT
  Age: 67 Year
  Sex: Male
  Weight: 81.7 kg

DRUGS (2)
  1. TRAZODONE [Suspect]
     Active Substance: TRAZODONE HYDROCHLORIDE
  2. FLUOXETINE [Suspect]
     Active Substance: FLUOXETINE HYDROCHLORIDE
     Indication: POST-TRAUMATIC STRESS DISORDER
     Route: 048
     Dates: start: 20140903, end: 20141031

REACTIONS (6)
  - Hypophagia [None]
  - Aggression [None]
  - Hyponatraemia [None]
  - Hallucination [None]
  - Abnormal behaviour [None]
  - Psychotic disorder [None]

NARRATIVE: CASE EVENT DATE: 20141031
